FAERS Safety Report 16316727 (Version 8)
Quarter: 2020Q1

REPORT INFORMATION
  Report Type: Spontaneous
  Country: DE (occurrence: DE)
  Receive Date: 20190515
  Receipt Date: 20200310
  Transmission Date: 20200409
  Serious: Yes (Hospitalization, Other)
  Sender: FDA-Public Use
  Company Number: PHHY2019DE108860

PATIENT
  Sex: Male
  Weight: 76 kg

DRUGS (18)
  1. VALSARTAN - 1 A PHARMA PLUS 160 MG/12,5 MG FILMTABLETTEN [Suspect]
     Active Substance: HYDROCHLOROTHIAZIDE\VALSARTAN
     Indication: HYPERTENSION
     Dosage: 1 DF, UNK (160MG/25MG)
     Route: 065
     Dates: start: 201402
  2. VALSARTAN. [Concomitant]
     Active Substance: VALSARTAN
     Indication: HYPERTENSION
     Dosage: 160 MG
     Route: 065
  3. VESIKUR [Concomitant]
     Active Substance: SOLIFENACIN SUCCINATE
     Indication: PRODUCT USED FOR UNKNOWN INDICATION
     Dosage: 10 MG, QD (MORNING)
     Route: 048
  4. SIMVASTATIN. [Concomitant]
     Active Substance: SIMVASTATIN
     Indication: PRODUCT USED FOR UNKNOWN INDICATION
     Dosage: 40 MG, QD (EVENING)
     Route: 065
     Dates: start: 2014
  5. SPASMEX [Concomitant]
     Dosage: 45 MG, QD (1/3 X 45 MG, MORNING)
     Route: 065
  6. VALSARTAN - 1 A PHARMA 80 MG FILMTABLETTEN [Suspect]
     Active Substance: VALSARTAN
     Indication: HYPERTENSION
     Dosage: 80 MG, QD (HALF OF 160MG MORNING)
     Route: 065
     Dates: start: 201402, end: 201805
  7. XARELTO [Concomitant]
     Active Substance: RIVAROXABAN
     Dosage: UNK
     Route: 065
     Dates: start: 201802, end: 201803
  8. FERRO-SANOL DUODENAL [Concomitant]
     Active Substance: FERROUS GLYCINE SULFATE
     Indication: PRODUCT USED FOR UNKNOWN INDICATION
     Dosage: 100 OT, QD (MORNING)
     Route: 065
     Dates: start: 2014
  9. DICLOFENAC [Concomitant]
     Active Substance: DICLOFENAC
     Indication: PRODUCT USED FOR UNKNOWN INDICATION
     Dosage: UNK
     Route: 065
  10. XARELTO [Concomitant]
     Active Substance: RIVAROXABAN
     Dosage: UNK
     Route: 065
     Dates: start: 201803
  11. ELIQUIS [Concomitant]
     Active Substance: APIXABAN
     Indication: PRODUCT USED FOR UNKNOWN INDICATION
     Dosage: 2.5 MG, BID (MORNING AND EVENING)
     Route: 065
     Dates: start: 2017
  12. SPASMEX [Concomitant]
     Indication: PRODUCT USED FOR UNKNOWN INDICATION
     Dosage: 45 MG, QD (2/3 X 45 MG, MORNING)
     Route: 065
  13. PANTOPRAZOLE [Concomitant]
     Active Substance: PANTOPRAZOLE
     Indication: PRODUCT USED FOR UNKNOWN INDICATION
     Dosage: 40 MG, QD (MORNING)
     Route: 065
     Dates: start: 2014
  14. BETMIGA [Concomitant]
     Active Substance: MIRABEGRON
     Indication: PRODUCT USED FOR UNKNOWN INDICATION
     Dosage: 50 MG, QD (EVENING)
     Route: 065
  15. XARELTO [Concomitant]
     Active Substance: RIVAROXABAN
     Indication: PRODUCT USED FOR UNKNOWN INDICATION
     Dosage: UNK
     Route: 065
     Dates: start: 2014, end: 201802
  16. EMSELEX [Concomitant]
     Active Substance: DARIFENACIN HYDROBROMIDE
     Indication: PRODUCT USED FOR UNKNOWN INDICATION
     Dosage: 15 MG, QD (MORNING)
     Route: 065
     Dates: start: 2017
  17. CANDESARTAN. [Concomitant]
     Active Substance: CANDESARTAN
     Indication: PRODUCT USED FOR UNKNOWN INDICATION
     Dosage: 4 OT, QD (EVENING)
     Route: 065
  18. DEKRISTOL [Concomitant]
     Active Substance: CHOLECALCIFEROL
     Indication: PRODUCT USED FOR UNKNOWN INDICATION
     Dosage: 200000 IU, QMO (IN THE MORNINGS ON 15TH)
     Route: 048

REACTIONS (26)
  - Bladder cancer recurrent [Recovered/Resolved]
  - General physical health deterioration [Recovering/Resolving]
  - Hypercalcaemia [Unknown]
  - Urinary incontinence [Unknown]
  - Chronic kidney disease [Unknown]
  - Hypercholesterolaemia [Unknown]
  - Bladder spasm [Unknown]
  - Bladder transitional cell carcinoma [Unknown]
  - Haematuria [Unknown]
  - Cerebral ischaemia [Unknown]
  - Cystitis noninfective [Unknown]
  - Benign prostatic hyperplasia [Unknown]
  - Prostatitis [Unknown]
  - Urethritis [Unknown]
  - Iron deficiency [Unknown]
  - Necrosis [Unknown]
  - Microcytic anaemia [Unknown]
  - Bladder transitional cell carcinoma [Recovered/Resolved with Sequelae]
  - Bladder tamponade [Unknown]
  - Dehydration [Unknown]
  - Nocturia [Unknown]
  - Glomerular filtration rate decreased [Unknown]
  - Urinary tract infection [Unknown]
  - Cerebrovascular accident [Unknown]
  - Urinary retention [Unknown]
  - Renal failure [Unknown]

NARRATIVE: CASE EVENT DATE: 201510
